FAERS Safety Report 13995404 (Version 2)
Quarter: 2017Q4

REPORT INFORMATION
  Report Type: Report from Study
  Country: None (occurrence: BR)
  Receive Date: 20170921
  Receipt Date: 20171115
  Transmission Date: 20180321
  Serious: Yes (Other)
  Sender: FDA-Public Use
  Company Number: BR-ABBVIE-17K-020-2105198-00

PATIENT
  Age: 35 Year
  Sex: Female
  Weight: 86 kg

DRUGS (1)
  1. HUMIRA [Suspect]
     Active Substance: ADALIMUMAB
     Indication: RHEUMATOID ARTHRITIS
     Route: 058
     Dates: start: 20170901, end: 20171001

REACTIONS (6)
  - Intracranial pressure increased [Recovering/Resolving]
  - Injection site pain [Unknown]
  - Medical device site calcification [Unknown]
  - Device occlusion [Not Recovered/Not Resolved]
  - Renal cyst [Unknown]
  - Headache [Recovering/Resolving]

NARRATIVE: CASE EVENT DATE: 2017
